FAERS Safety Report 11092145 (Version 9)
Quarter: 2016Q1

REPORT INFORMATION
  Report Type: Report from Study
  Country: CA (occurrence: CA)
  Receive Date: 20150505
  Receipt Date: 20160113
  Transmission Date: 20160525
  Serious: Yes (Death, Hospitalization, Other)
  Sender: FDA-Public Use
  Company Number: PHHY2015CA033284

PATIENT
  Age: 58 Year
  Sex: Female

DRUGS (4)
  1. SANDOSTATIN [Suspect]
     Active Substance: OCTREOTIDE ACETATE
     Indication: GASTROINTESTINAL CARCINOMA
  2. SANDOSTATIN LAR DEPOT [Suspect]
     Active Substance: OCTREOTIDE ACETATE
     Indication: OVARIAN NEOPLASM
     Dosage: 20 MG, QMO, ONCE A MONTH
     Route: 030
     Dates: start: 20150216
  3. SANDOSTATIN LAR DEPOT [Suspect]
     Active Substance: OCTREOTIDE ACETATE
     Indication: GASTROINTESTINAL CARCINOMA
     Dosage: 30 MG, QMO (EVERY 28 DAYS/ 4 WEEKS)
     Route: 030
  4. SANDOSTATIN [Suspect]
     Active Substance: OCTREOTIDE ACETATE
     Indication: OVARIAN NEOPLASM
     Dosage: 100 UG, BID
     Route: 058
     Dates: start: 20150116, end: 201502

REACTIONS (8)
  - Abdominal pain [Not Recovered/Not Resolved]
  - Abdominal hernia [Unknown]
  - Death [Fatal]
  - General physical health deterioration [Unknown]
  - Adhesion [Unknown]
  - Product use issue [Unknown]
  - Cognitive disorder [Unknown]
  - Constipation [Unknown]

NARRATIVE: CASE EVENT DATE: 20150308
